FAERS Safety Report 5648751-5 (Version None)
Quarter: 2008Q1

REPORT INFORMATION
  Report Type: 
  Country: None (occurrence: None)
  Receive Date: 20080229
  Receipt Date: 20080225
  Transmission Date: 20080703
  Serious: Yes (Death, Hospitalization)
  Sender: FDA-Public Use
  Company Number: T07-CHL-05183-01

PATIENT
  Age: 85 Year
  Sex: Male
  Weight: 92 kg

DRUGS (6)
  1. MEMANTINE (OPEN LABEL) (MEMANTINE) [Suspect]
     Indication: DEMENTIA ALZHEIMER'S TYPE
     Dosage: 28 MG QD PO
     Route: 048
     Dates: start: 20070801, end: 20070914
  2. MEMANTINE (OPEN LABEL) (MEMANTINE) [Suspect]
     Indication: DEMENTIA ALZHEIMER'S TYPE
     Dosage: 28 MG QD PO
     Route: 048
     Dates: start: 20070917, end: 20070926
  3. CHLORODIAZEPOXIDE [Concomitant]
  4. DONEPEZIL HCL [Concomitant]
  5. ENALAPRILE [Concomitant]
  6. ASPIRIN [Concomitant]

REACTIONS (9)
  - ACCIDENT [None]
  - ACUTE MYOCARDIAL INFARCTION [None]
  - ATRIOVENTRICULAR BLOCK [None]
  - BLOOD UREA INCREASED [None]
  - BUNDLE BRANCH BLOCK LEFT [None]
  - FALL [None]
  - HIP FRACTURE [None]
  - THERAPY CESSATION [None]
  - VENTRICULAR ARRHYTHMIA [None]
